FAERS Safety Report 7959056-1 (Version None)
Quarter: 2011Q4

REPORT INFORMATION
  Report Type: 
  Country: None (occurrence: None)
  Receive Date: 20111206
  Receipt Date: 20110829
  Transmission Date: 20120403
  Serious: No
  Sender: FDA-Public Use
  Company Number: US-GLAXOSMITHKLINE-A0942728A

PATIENT
  Age: 46 Year
  Sex: Female

DRUGS (5)
  1. SIMVASTATIN [Concomitant]
  2. LITHIUM CARBONATE [Concomitant]
  3. PAXIL [Concomitant]
  4. LAMICTAL [Suspect]
     Indication: BIPOLAR DISORDER
     Dosage: 100MG PER DAY
     Route: 048
     Dates: start: 20060101, end: 20110801
  5. SYNTHROID [Concomitant]

REACTIONS (6)
  - FEELING ABNORMAL [None]
  - ANXIETY [None]
  - INSOMNIA [None]
  - ABDOMINAL PAIN UPPER [None]
  - DISSOCIATION [None]
  - CHOKING SENSATION [None]
